FAERS Safety Report 5705288-2 (Version None)
Quarter: 2008Q2

REPORT INFORMATION
  Report Type: 
  Country: None (occurrence: None)
  Receive Date: 20080410
  Receipt Date: 20080326
  Transmission Date: 20081010
  Serious: Yes (Other)
  Sender: FDA-Public Use
  Company Number: 2008SP006009

PATIENT
  Age: 7 Year
  Sex: Male
  Weight: 29 kg

DRUGS (3)
  1. LORATADINE [Suspect]
     Indication: SEASONAL ALLERGY
     Dosage: 5 ML; PO
     Route: 048
     Dates: start: 20080202, end: 20080221
  2. BECLOMETHASONE DIPROPIONATE [Concomitant]
  3. ALBUTEROL [Concomitant]

REACTIONS (3)
  - ABNORMAL DREAMS [None]
  - SLEEP TERROR [None]
  - SOMNAMBULISM [None]
